FAERS Safety Report 5307715-1 (Version None)
Quarter: 2007Q2

REPORT INFORMATION
  Report Type: 
  Country: None (occurrence: None)
  Receive Date: 20070418
  Receipt Date: 20070409
  Transmission Date: 20071010
  Serious: Yes (Other)
  Sender: FDA-Public Use
  Company Number: S07-USA-01512-01

PATIENT
  Age: 64 Year
  Sex: Male

DRUGS (9)
  1. LEXAPRO [Suspect]
     Indication: ANXIETY
     Dosage: 10 MG QD PO
     Route: 048
     Dates: start: 20070318
  2. LEXAPRO [Suspect]
     Indication: DEPRESSION
     Dosage: 10 MG QD PO
     Route: 048
     Dates: start: 20070318
  3. LEXAPRO [Suspect]
     Indication: ANXIETY
     Dosage: 5 MG QD PO
     Route: 048
     Dates: start: 20070314, end: 20070317
  4. LEXAPRO [Suspect]
     Indication: DEPRESSION
     Dosage: 5 MG QD PO
     Route: 048
     Dates: start: 20070314, end: 20070317
  5. AMBIEN [Concomitant]
  6. CYMBALTA [Concomitant]
  7. CLONAZEPAM [Concomitant]
  8. HYZAAR (LOSARTAN/HYDROCHLOROTHIAZIDE) [Concomitant]
  9. ASPIRIN [Concomitant]

REACTIONS (4)
  - HYPERTENSION [None]
  - OPTIC NERVE SHEATH HAEMORRHAGE [None]
  - PAPILLOEDEMA [None]
  - VISUAL DISTURBANCE [None]
